FAERS Safety Report 8811722 (Version 3)
Quarter: 2013Q1

REPORT INFORMATION
  Report Type: Spontaneous
  Country: IT (occurrence: IT)
  Receive Date: 20120927
  Receipt Date: 20130117
  Transmission Date: 20140127
  Serious: Yes (Other)
  Sender: FDA-Public Use
  Company Number: PHHY2012IT082571

PATIENT
  Age: 33 Year
  Sex: Female

DRUGS (3)
  1. GILENYA [Suspect]
     Indication: MULTIPLE SCLEROSIS
     Dosage: 0.5 MG, DAILY
     Route: 048
     Dates: start: 20120823, end: 20120918
  2. GILENYA [Suspect]
     Dosage: 0.5 MG, QD
     Route: 048
     Dates: start: 201211
  3. MANTADAN [Concomitant]
     Indication: FATIGUE
     Dosage: 200 MG, UNK
     Dates: start: 201209, end: 20120918

REACTIONS (8)
  - Blood creatine phosphokinase increased [Recovered/Resolved]
  - Alanine aminotransferase increased [Recovering/Resolving]
  - Aspartate aminotransferase increased [Recovering/Resolving]
  - Tenderness [Recovering/Resolving]
  - Muscle tightness [Recovering/Resolving]
  - Asthenia [Recovering/Resolving]
  - Muscle oedema [Unknown]
  - Lymphocyte count decreased [Unknown]
